FAERS Safety Report 22018651 (Version 2)
Quarter: 2023Q1

REPORT INFORMATION
  Report Type: Report from Study
  Country: US (occurrence: US)
  Receive Date: 20230222
  Receipt Date: 20230324
  Transmission Date: 20230418
  Serious: Yes (Other)
  Sender: FDA-Public Use
  Company Number: US-002147023-NVSC2023US034892

PATIENT
  Sex: Female

DRUGS (4)
  1. ENTRESTO [Suspect]
     Active Substance: SACUBITRIL\VALSARTAN
     Indication: Cardiac failure
     Dosage: 1 DOSAGE FORM, BID (49/51 MG)
     Route: 048
     Dates: start: 202107
  2. ENTRESTO [Suspect]
     Active Substance: SACUBITRIL\VALSARTAN
     Dosage: 1 DOSAGE FORM, BID (49/51 MG)
     Route: 048
     Dates: start: 202107
  3. COREG [Suspect]
     Active Substance: CARVEDILOL
     Indication: Product used for unknown indication
     Dosage: UNK
     Route: 065
  4. COREG [Suspect]
     Active Substance: CARVEDILOL
     Dosage: 9.375 MG, BID (3.125 MG IN THE MORNING AND 6.25 MG AT NIGHT)
     Route: 065

REACTIONS (6)
  - Breast cancer [Unknown]
  - Angina pectoris [Unknown]
  - Fatigue [Recovering/Resolving]
  - Hypotension [Unknown]
  - Throat clearing [Unknown]
  - Back pain [Unknown]

NARRATIVE: CASE EVENT DATE: 20220101
